FAERS Safety Report 8463902-5 (Version None)
Quarter: 2012Q2

REPORT INFORMATION
  Report Type: 
  Country: None (occurrence: None)
  Receive Date: 20120625
  Receipt Date: 20120614
  Transmission Date: 20120825
  Serious: Yes (Hospitalization)
  Sender: FDA-Public Use
  Company Number: US-CELGENEUS-163-AB007-12052196

PATIENT
  Sex: Male
  Weight: 91.708 kg

DRUGS (12)
  1. GEMCITABINE [Suspect]
     Dosage: 800 MILLIGRAM/SQ. METER
     Route: 041
     Dates: start: 20120501, end: 20120605
  2. HYDROCODONE [Concomitant]
     Route: 065
  3. ABRAXANE [Suspect]
     Dosage: 100 MILLIGRAM/SQ. METER
     Route: 041
     Dates: start: 20120501, end: 20120605
  4. ASPIRIN [Concomitant]
     Indication: PROPHYLAXIS
     Dosage: 81 MILLIGRAM
     Route: 048
     Dates: start: 20020101
  5. ABRAXANE [Suspect]
     Dosage: 125 MILLIGRAM/SQ. METER
     Route: 041
     Dates: start: 20120214
  6. LISINOPRIL [Concomitant]
     Indication: HYPERTENSION
     Dosage: 10 MILLIGRAM
     Route: 048
     Dates: start: 20080101
  7. OXYCODONE HCL [Concomitant]
     Indication: PAIN
     Dosage: 10 MILLIGRAM
     Route: 048
     Dates: start: 20120320
  8. VITAMIN C AND E [Concomitant]
     Dosage: 1 TABLET
     Route: 048
     Dates: start: 20020101
  9. PROCHLORPERAZINE [Concomitant]
     Route: 065
  10. GEMCITABINE [Suspect]
     Dosage: 1000 MILLIGRAM/SQ. METER
     Route: 041
     Dates: start: 20120214
  11. EMLA [Concomitant]
     Route: 061
  12. FLUIDS [Concomitant]
     Route: 041
     Dates: start: 20120101

REACTIONS (1)
  - ASCITES [None]
